FAERS Safety Report 14446713 (Version 1)
Quarter: 2018Q1

REPORT INFORMATION
  Report Type: Spontaneous
  Country: FR (occurrence: FR)
  Receive Date: 20180126
  Receipt Date: 20180126
  Transmission Date: 20180509
  Serious: Yes (Hospitalization)
  Sender: FDA-Public Use
  Company Number: PHHY2018FR009553

PATIENT
  Age: 87 Year
  Sex: Female

DRUGS (2)
  1. ENTRESTO [Suspect]
     Active Substance: SACUBITRIL\VALSARTAN
     Dosage: 2 DF,(49/51 MG) QD
     Route: 065
     Dates: start: 201712
  2. ENTRESTO [Suspect]
     Active Substance: SACUBITRIL\VALSARTAN
     Indication: CARDIAC FAILURE
     Dosage: 2 DF(24/26 MG), QD
     Route: 065
     Dates: start: 201710, end: 201712

REACTIONS (1)
  - Peripheral ischaemia [Unknown]

NARRATIVE: CASE EVENT DATE: 20180117
